FAERS Safety Report 9648698 (Version 1)
Quarter: 2013Q4

REPORT INFORMATION
  Report Type: Spontaneous
  Country: US (occurrence: US)
  Receive Date: 20131028
  Receipt Date: 20131028
  Transmission Date: 20140711
  Serious: No
  Sender: FDA-Public Use
  Company Number: US-MYLANLABS-2013S1013221

PATIENT
  Sex: Male
  Weight: 81.65 kg

DRUGS (3)
  1. RISPERIDONE TABLETS USP [Suspect]
     Indication: SCHIZOPHRENIA
     Route: 048
  2. LORAZEPAM [Concomitant]
     Indication: ANXIETY
     Route: 048
  3. DIVALPROEX [Concomitant]
     Indication: SCHIZOPHRENIA
     Dosage: USING 500MG TABLETS
     Route: 048

REACTIONS (1)
  - Gynaecomastia [Not Recovered/Not Resolved]
